FAERS Safety Report 4377838-2 (Version None)
Quarter: 2004Q2

REPORT INFORMATION
  Report Type: 
  Country: None (occurrence: None)
  Receive Date: 20040616
  Receipt Date: 20040607
  Transmission Date: 20050107
  Serious: Yes (Hospitalization, Disabling)
  Sender: FDA-Public Use
  Company Number: 200412269FR

PATIENT
  Age: 65 Year
  Sex: Female

DRUGS (5)
  1. TAXOTERE [Suspect]
     Indication: BREAST CANCER METASTATIC
     Route: 042
     Dates: start: 20040406, end: 20040406
  2. ARIMIDEX [Suspect]
     Indication: BREAST CANCER METASTATIC
     Route: 048
     Dates: start: 20040406
  3. SOLUPRED [Suspect]
     Indication: PREMEDICATION
     Route: 048
     Dates: start: 20040405, end: 20040408
  4. DAONIL [Concomitant]
     Indication: DIABETES MELLITUS NON-INSULIN-DEPENDENT
     Route: 048
     Dates: start: 19990203
  5. METFORMIN HCL [Concomitant]
     Indication: DIABETES MELLITUS NON-INSULIN-DEPENDENT
     Route: 048
     Dates: start: 20000304

REACTIONS (5)
  - DEHYDRATION [None]
  - DIABETIC KETOACIDOSIS [None]
  - PSEUDOMONAS INFECTION [None]
  - RENAL FAILURE [None]
  - SUPERINFECTION [None]
